FAERS Safety Report 4517194-X (Version None)
Quarter: 2004Q4

REPORT INFORMATION
  Report Type: 
  Country: None (occurrence: None)
  Receive Date: 20041130
  Receipt Date: 20041115
  Transmission Date: 20050328
  Serious: Yes (Other)
  Sender: FDA-Public Use
  Company Number: GBS040915586

PATIENT
  Age: 60 Year
  Sex: Female

DRUGS (12)
  1. FORTEO [Suspect]
     Indication: OSTEOPOROSIS
     Dosage: 20 UG DY
     Dates: start: 20040702, end: 20040826
  2. EVISTA [Concomitant]
  3. DIAZEPAM [Concomitant]
  4. COLOFAC (MEBEVERINE HYDROCHLORIDE) [Concomitant]
  5. SOLPADEINE [Concomitant]
  6. CLAVAMEL [Concomitant]
  7. BUMETANIDE [Concomitant]
  8. NEXIUM [Concomitant]
  9. MOGADON (NITRAZEPAM) [Concomitant]
  10. SANDOCAL (CALCIUM GLUBIONATE) [Concomitant]
  11. FOLIC ACID [Concomitant]
  12. CINNARIZINE [Concomitant]

REACTIONS (1)
  - OEDEMA PERIPHERAL [None]
